FAERS Safety Report 24245516 (Version 1)
Quarter: 2024Q3

REPORT INFORMATION
  Report Type: Spontaneous
  Country: FR (occurrence: FR)
  Receive Date: 20240824
  Receipt Date: 20240824
  Transmission Date: 20241017
  Serious: Yes (Hospitalization)
  Sender: TEVA
  Company Number: None

PATIENT
  Age: 60 Year
  Sex: Male
  Weight: 87 kg

DRUGS (2)
  1. DICLOFENAC [Suspect]
     Active Substance: DICLOFENAC
     Indication: Angina pectoris
     Dosage: 1 TO 2/D
     Route: 048
     Dates: start: 20240708, end: 20240710
  2. IBUPROFEN [Suspect]
     Active Substance: IBUPROFEN
     Indication: Angina pectoris
     Route: 048
     Dates: start: 20240711, end: 20240711

REACTIONS (3)
  - Cellulitis streptococcal [Recovering/Resolving]
  - Parapharyngeal space infection [Recovering/Resolving]
  - Mediastinitis [Recovering/Resolving]

NARRATIVE: CASE EVENT DATE: 20240711
